FAERS Safety Report 9012857 (Version 1)
Quarter: 2013Q1

REPORT INFORMATION
  Report Type: Spontaneous
  Country: US (occurrence: US)
  Receive Date: 20130114
  Receipt Date: 20130114
  Transmission Date: 20140127
  Serious: Yes (Other)
  Sender: FDA-Public Use
  Company Number: US-009507513-1301USA002059

PATIENT
  Age: 69 Year
  Sex: Male

DRUGS (5)
  1. SINGULAIR [Suspect]
     Dosage: 10 MG, QD
     Route: 048
  2. DIOVAN [Suspect]
     Dosage: 8 MG, UNK
  3. AMLODIPINE [Concomitant]
     Indication: ASTHMA
  4. VENTOLIN (ALBUTEROL) [Concomitant]
     Indication: HYPERTENSION
  5. SYMBICORT [Concomitant]

REACTIONS (4)
  - Renal impairment [Unknown]
  - Neuritis [Unknown]
  - Eosinophilia [Unknown]
  - Asthenia [Unknown]
